FAERS Safety Report 10142178 (Version 1)
Quarter: 2014Q2

REPORT INFORMATION
  Report Type: Report from Study
  Country: CN (occurrence: CN)
  Receive Date: 20140429
  Receipt Date: 20140429
  Transmission Date: 20141212
  Serious: Yes (Other)
  Sender: FDA-Public Use
  Company Number: CN-ASTELLAS-2014US004568

PATIENT
  Sex: 0

DRUGS (4)
  1. ERLOTINIB [Suspect]
     Indication: NON-SMALL CELL LUNG CANCER
     Dosage: 150 MG, ONCE DAILY, DAYS 15 TO 28
     Route: 048
  2. GEMCITABINE                        /01215702/ [Suspect]
     Indication: NON-SMALL CELL LUNG CANCER
     Dosage: 1000 MG/M2, ONCE DAILY,DAY 1, 8
     Route: 065
  3. CISPLATIN [Suspect]
     Indication: NON-SMALL CELL LUNG CANCER
     Dosage: 75 MG/M2, ONCE DAILY, DAY 1
     Route: 065
  4. CARBOPLATIN [Suspect]
     Indication: NON-SMALL CELL LUNG CANCER
     Dosage: AUC = 5 (DAY 1), ONCE DAILY
     Route: 065

REACTIONS (1)
  - Bone marrow failure [Unknown]
